FAERS Safety Report 4959813-X (Version None)
Quarter: 2006Q1

REPORT INFORMATION
  Report Type: 
  Country: None (occurrence: None)
  Receive Date: 20060324
  Receipt Date: 20060315
  Transmission Date: 20060701
  Serious: Yes (Hospitalization)
  Sender: FDA-Public Use
  Company Number: FRWYE472415MAR06

PATIENT
  Age: 29 Year
  Sex: Female

DRUGS (4)
  1. LEVONORGESTREL [Suspect]
     Indication: ORAL CONTRACEPTION
     Dosage: 1 TABLET 1X PER 1 DAY ORAL
     Route: 048
     Dates: start: 20041030, end: 20041231
  2. HOMEOPATIC PREPARATION (HOMEPATIC PREPARATION, ) [Suspect]
     Indication: PHARYNGITIS
     Dosage: ORAL
     Route: 048
     Dates: start: 20041204, end: 20041208
  3. OSTRAM (CALCIUM PHOSPHATE) [Suspect]
     Dosage: 1 DOSE 1X PER 1 DAY ORAL
     Route: 048
     Dates: start: 20041025, end: 20041231
  4. TARDYFERON-FOL (FERROUS SULFATE/FOLIC ACID) [Suspect]
     Dosage: 1 DOSE 1X PER 1 DAY ORAL
     Route: 048
     Dates: start: 20041025, end: 20041231

REACTIONS (3)
  - ACTIVATED PARTIAL THROMBOPLASTIN TIME PROLONGED [None]
  - COOMBS POSITIVE HAEMOLYTIC ANAEMIA [None]
  - DEEP VEIN THROMBOSIS [None]
